FAERS Safety Report 21890820 (Version 1)
Quarter: 2023Q1

REPORT INFORMATION
  Report Type: Spontaneous
  Country: US (occurrence: US)
  Receive Date: 20230120
  Receipt Date: 20230120
  Transmission Date: 20230417
  Serious: No
  Sender: FDA-Public Use
  Company Number: US-ANTARES PHARMA, INC.-2022-SPO-TU-0002

PATIENT

DRUGS (1)
  1. TLANDO [Suspect]
     Active Substance: TESTOSTERONE UNDECANOATE
     Indication: Product used for unknown indication
     Dosage: UNK
     Route: 065

REACTIONS (1)
  - Blood pressure increased [Unknown]
